FAERS Safety Report 12184989 (Version 1)
Quarter: 2016Q1

REPORT INFORMATION
  Report Type: Spontaneous
  Country: US (occurrence: US)
  Receive Date: 20160316
  Receipt Date: 20160316
  Transmission Date: 20160526
  Serious: Yes (Hospitalization)
  Sender: FDA-Public Use
  Company Number: US-UNITED THERAPEUTICS-UNT-2015-015815

PATIENT
  Age: 46 Year
  Sex: Female
  Weight: 79.37 kg

DRUGS (1)
  1. REMODULIN [Suspect]
     Active Substance: TREPROSTINIL
     Indication: PULMONARY HYPERTENSION
     Dosage: 0.149 ?G/KG, CONTINUING
     Route: 041
     Dates: start: 20101004

REACTIONS (1)
  - Cervix disorder [Unknown]

NARRATIVE: CASE EVENT DATE: 201512
